FAERS Safety Report 14693354 (Version 2)
Quarter: 2020Q1

REPORT INFORMATION
  Report Type: Spontaneous
  Country: US (occurrence: US)
  Receive Date: 20180329
  Receipt Date: 20200220
  Transmission Date: 20200409
  Serious: Yes (Hospitalization, Disabling, Other)
  Sender: FDA-Public Use
  Company Number: US-ASTRAZENECA-2018SE37324

PATIENT
  Age: 51 Year
  Sex: Male

DRUGS (43)
  1. PRILOSEC [Suspect]
     Active Substance: OMEPRAZOLE MAGNESIUM
     Indication: GASTROOESOPHAGEAL REFLUX DISEASE
     Dosage: GENERIC- DELAYED RELEASE40.0MG UNKNOWN
     Route: 048
  2. CALCIUM ACETATE. [Concomitant]
     Active Substance: CALCIUM ACETATE
     Indication: BLOOD PHOSPHORUS
     Route: 048
  3. CLOTRIMAZOLE. [Concomitant]
     Active Substance: CLOTRIMAZOLE
     Dosage: 1% TROPICAL CREAM- TWO TIMES A DAY
  4. CATAPRES [Concomitant]
     Active Substance: CLONIDINE HYDROCHLORIDE
  5. COLACE [Concomitant]
     Active Substance: DOCUSATE SODIUM
  6. BECLOMETHASONE [Concomitant]
     Active Substance: BECLOMETHASONE
  7. PREVACID [Suspect]
     Active Substance: LANSOPRAZOLE
     Route: 065
  8. TAMSULOSIN [Concomitant]
     Active Substance: TAMSULOSIN
     Indication: MUSCLE RELAXANT THERAPY
     Route: 048
  9. NIFEDIPINE. [Concomitant]
     Active Substance: NIFEDIPINE
     Dosage: EXTENDED RELEASE
     Route: 048
  10. METOPROLOL TARTRATE. [Concomitant]
     Active Substance: METOPROLOL TARTRATE
     Route: 048
  11. PREGABALIN. [Concomitant]
     Active Substance: PREGABALIN
  12. CVS BISMUTH [Concomitant]
  13. PRILOSEC [Suspect]
     Active Substance: OMEPRAZOLE MAGNESIUM
     Indication: GASTROOESOPHAGEAL REFLUX DISEASE
     Dosage: GENERIC40.0MG UNKNOWN
     Route: 065
     Dates: start: 20111020, end: 20161110
  14. HYDRALAZINE [Concomitant]
     Active Substance: HYDRALAZINE HYDROCHLORIDE
     Indication: BLOOD PRESSURE MEASUREMENT
     Route: 048
  15. FLUCONAZOLE. [Concomitant]
     Active Substance: FLUCONAZOLE
     Indication: INFECTION
     Dosage: EVERY WEEK ON FRIDAY
     Route: 048
  16. ZANTAC [Concomitant]
     Active Substance: RANITIDINE HYDROCHLORIDE
  17. GRISEOFULVIN. [Concomitant]
     Active Substance: GRISEOFULVIN
     Route: 048
  18. SODIUM CITRATE. [Concomitant]
     Active Substance: SODIUM CITRATE
     Dosage: 500 MG- 334 MG/5 ML ORAL SOLUTION
  19. NORCO [Concomitant]
     Active Substance: ACETAMINOPHEN\HYDROCODONE BITARTRATE
  20. MAGNESIUM OXIDE. [Concomitant]
     Active Substance: MAGNESIUM OXIDE
  21. PRILOSEC [Suspect]
     Active Substance: OMEPRAZOLE MAGNESIUM
     Indication: GASTROOESOPHAGEAL REFLUX DISEASE
     Dosage: 20.0MG UNKNOWN
     Route: 048
     Dates: start: 20110531, end: 20170420
  22. CARVEDILOL. [Concomitant]
     Active Substance: CARVEDILOL
     Indication: HYPERTENSION
     Route: 048
  23. PEPCID [Concomitant]
     Active Substance: FAMOTIDINE
  24. ISOPHANE INSULIN [Concomitant]
     Active Substance: INSULIN NOS
     Dosage: 70 UNITES-30 UNITS/ML SUBCUTANEOUS INJECTION
  25. LACTULOSE. [Concomitant]
     Active Substance: LACTULOSE
     Dosage: 10 G/15 ML - DAILY
     Route: 048
  26. ZOCOR [Concomitant]
     Active Substance: SIMVASTATIN
     Route: 048
  27. METRONIDAZOLE. [Concomitant]
     Active Substance: METRONIDAZOLE
  28. BISACODYL. [Concomitant]
     Active Substance: BISACODYL
  29. BICITRA [Concomitant]
     Active Substance: CITRIC ACID, 1-STEARYL ESTER\SODIUM CITRATE
  30. NEXIUM [Suspect]
     Active Substance: ESOMEPRAZOLE MAGNESIUM
     Route: 048
     Dates: start: 199001, end: 201012
  31. PRILOSEC [Suspect]
     Active Substance: OMEPRAZOLE MAGNESIUM
     Indication: GASTROOESOPHAGEAL REFLUX DISEASE
     Route: 048
     Dates: start: 199001, end: 201012
  32. ATORVASTATIN [Concomitant]
     Active Substance: ATORVASTATIN
     Indication: BLOOD CHOLESTEROL
     Route: 048
  33. TAGAMET [Concomitant]
     Active Substance: CIMETIDINE
  34. BUMETANIDE. [Concomitant]
     Active Substance: BUMETANIDE
     Route: 048
  35. ERGOCALCIFEROL. [Concomitant]
     Active Substance: ERGOCALCIFEROL
     Route: 048
  36. FERROUS SULFATE. [Concomitant]
     Active Substance: FERROUS SULFATE
     Route: 048
  37. CYCLOBENZAPRINE. [Concomitant]
     Active Substance: CYCLOBENZAPRINE
     Route: 048
  38. COZAAR [Concomitant]
     Active Substance: LOSARTAN POTASSIUM
     Route: 048
  39. TETRACYCLINE [Concomitant]
     Active Substance: TETRACYCLINE
  40. ASPIRIN. [Concomitant]
     Active Substance: ASPIRIN
     Route: 048
  41. DOCUSATE [Concomitant]
     Active Substance: DOCUSATE
     Route: 048
  42. FUROSEMIDE. [Concomitant]
     Active Substance: FUROSEMIDE
     Route: 048
  43. NEURONTIN [Concomitant]
     Active Substance: GABAPENTIN

REACTIONS (4)
  - Acute kidney injury [Unknown]
  - End stage renal disease [Not Recovered/Not Resolved]
  - Renal failure [Not Recovered/Not Resolved]
  - Chronic kidney disease [Not Recovered/Not Resolved]

NARRATIVE: CASE EVENT DATE: 2009
